FAERS Safety Report 21601067 (Version 2)
Quarter: 2022Q4

REPORT INFORMATION
  Report Type: Spontaneous
  Country: US (occurrence: US)
  Receive Date: 20221116
  Receipt Date: 20221122
  Transmission Date: 20230113
  Serious: No
  Sender: FDA-Public Use
  Company Number: US-TAKEDA-2022TUS084958

PATIENT
  Sex: Female
  Weight: 63 kg

DRUGS (2)
  1. TRINTELLIX [Suspect]
     Active Substance: VORTIOXETINE HYDROBROMIDE
     Indication: Depression
     Dosage: 10 MILLIGRAM, QD
     Route: 048
     Dates: start: 202201
  2. TRINTELLIX [Suspect]
     Active Substance: VORTIOXETINE HYDROBROMIDE
     Dosage: 20 MILLIGRAM, QD
     Route: 048
     Dates: end: 20221030

REACTIONS (6)
  - Rash papular [Recovered/Resolved]
  - Eyelids pruritus [Recovered/Resolved]
  - Reaction to colouring [Recovered/Resolved]
  - Abdominal discomfort [Unknown]
  - Wrong technique in product usage process [Unknown]
  - Nausea [Unknown]
